FAERS Safety Report 18854898 (Version 2)
Quarter: 2021Q2

REPORT INFORMATION
  Report Type: Spontaneous
  Country: US (occurrence: US)
  Receive Date: 20210205
  Receipt Date: 20210526
  Transmission Date: 20210717
  Serious: Yes (Death, Other)
  Sender: FDA-Public Use
  Company Number: US-GLAXOSMITHKLINE-US2021GSK030588

PATIENT
  Sex: Female

DRUGS (4)
  1. RANITIDINE CAPSULE [Suspect]
     Active Substance: RANITIDINE
     Indication: ABDOMINAL DISCOMFORT
     Dosage: OCCASIONAL|UNKNOWN AT THIS TIME|OVER THE COUNTER
     Route: 065
     Dates: start: 200803, end: 201904
  2. RANITIDINE. [Suspect]
     Active Substance: RANITIDINE
     Indication: ABDOMINAL DISCOMFORT
     Dosage: OCCASIONAL|UNKNOWN AT THIS TIME|PRESCRIPTION
     Route: 065
     Dates: start: 201707, end: 201904
  3. RANITIDINE. [Suspect]
     Active Substance: RANITIDINE
     Indication: ABDOMINAL DISCOMFORT
     Dosage: OCCASIONAL|UNKNOWN AT THIS TIME|PRESCRIPTION
     Route: 065
     Dates: start: 201707, end: 201904
  4. ZANTAC [Suspect]
     Active Substance: RANITIDINE HYDROCHLORIDE
     Indication: ABDOMINAL DISCOMFORT
     Dosage: OCCASIONAL|UNKNOWN AT THIS TIME|OVER THE COUNTER
     Route: 065
     Dates: start: 200803, end: 201904

REACTIONS (1)
  - Pancreatic carcinoma [Fatal]
